FAERS Safety Report 10643684 (Version 1)
Quarter: 2014Q4

REPORT INFORMATION
  Report Type: Spontaneous
  Country: US (occurrence: US)
  Receive Date: 20141210
  Receipt Date: 20141210
  Transmission Date: 20150529
  Serious: No
  Sender: FDA-Public Use
  Company Number: US-NOVEN-14US009186

PATIENT
  Age: 61 Year
  Sex: Female
  Weight: 42 kg

DRUGS (2)
  1. FENTANYL. [Suspect]
     Active Substance: FENTANYL
     Indication: PAIN
     Dosage: 100 UG/HR Q 72HRS
     Route: 062
     Dates: start: 20140312
  2. MS CONTIN [Concomitant]
     Active Substance: MORPHINE SULFATE
     Indication: PRODUCT USED FOR UNKNOWN INDICATION
     Dosage: UNK

REACTIONS (4)
  - Application site warmth [Not Recovered/Not Resolved]
  - Application site perspiration [Not Recovered/Not Resolved]
  - Application site pruritus [Not Recovered/Not Resolved]
  - Product quality issue [Not Recovered/Not Resolved]

NARRATIVE: CASE EVENT DATE: 20140314
